FAERS Safety Report 7747787-8 (Version None)
Quarter: 2011Q3

REPORT INFORMATION
  Report Type: 
  Country: None (occurrence: None)
  Receive Date: 20110909
  Receipt Date: 20110824
  Transmission Date: 20111222
  Serious: Yes (Death)
  Sender: FDA-Public Use
  Company Number: NES-AE-11-005

PATIENT
  Age: 52 Year
  Sex: Female

DRUGS (1)
  1. PROPAFENONE HCL [Suspect]
     Indication: PALPITATIONS
     Dosage: 225MG - ORAL
     Route: 048

REACTIONS (3)
  - ECONOMIC PROBLEM [None]
  - PAIN [None]
  - INJURY [None]
